FAERS Safety Report 4681181-1 (Version None)
Quarter: 2005Q2

REPORT INFORMATION
  Report Type: 
  Country: None (occurrence: None)
  Receive Date: 20050602
  Receipt Date: 20050602
  Transmission Date: 20051028
  Serious: No
  Sender: FDA-Public Use
  Company Number: None

PATIENT
  Sex: Female
  Weight: 69.5 kg

DRUGS (11)
  1. DOXORUBICIN [Suspect]
     Indication: BREAST CANCER
     Dosage: X 4 CYCLES
     Dates: start: 20001215
  2. CYCLOPHOSPHAMIDE [Suspect]
     Dosage: X 4 CYCLES
  3. PACLITAXEL [Suspect]
     Dosage: WEEKLY X 12
  4. TAMOXIFEN [Suspect]
     Dosage: X 5 YEARS
  5. ECOTRIN [Concomitant]
  6. GLUCOPHAGE [Concomitant]
  7. GLUCOTROL [Concomitant]
  8. LOPID [Concomitant]
  9. PLAVIX [Concomitant]
  10. SYNTHROID [Concomitant]
  11. TOPROL-XL [Concomitant]

REACTIONS (4)
  - CHEST PAIN [None]
  - CORONARY ARTERY OCCLUSION [None]
  - DYSPNOEA [None]
  - TROPONIN I INCREASED [None]
